FAERS Safety Report 8601215 (Version 5)
Quarter: 2013Q4

REPORT INFORMATION
  Report Type: Spontaneous
  Country: US (occurrence: US)
  Receive Date: 20120606
  Receipt Date: 20131226
  Transmission Date: 20140711
  Serious: No
  Sender: FDA-Public Use
  Company Number: PHEH2012US011403

PATIENT
  Age: 42 Year
  Sex: Female
  Weight: 103.9 kg

DRUGS (11)
  1. GILENYA (FTY) CAPSULE, 0.5MG [Suspect]
     Indication: MULTIPLE SCLEROSIS
     Dosage: 0.5 MG, QD
     Route: 048
     Dates: start: 20120501, end: 20120717
  2. DIOVAN (VALSARTAN) [Concomitant]
  3. METFORMIN (METFORMIN) [Concomitant]
  4. JANUVIA (SITAGLIPTIN PHOSPHATE) [Concomitant]
  5. NAMENDA (MEMANTINE HYDROCHLORIDE) [Concomitant]
  6. OXYBUTYNIN (OXBUTYNIN) [Concomitant]
  7. TRICOR (FENOFIBRATE) [Concomitant]
  8. SEROQUEL (QUETIAPINE FUMARATE) [Concomitant]
  9. NEURONTIN (GABAPENTIN) [Concomitant]
  10. VITAMIN D (ERGOCALCIFEROL) [Concomitant]
  11. CELEBREX (CELECOXIB) [Concomitant]

REACTIONS (12)
  - Dry skin [Unknown]
  - Balance disorder [Unknown]
  - Tachycardia [Unknown]
  - Decreased appetite [Unknown]
  - Gait disturbance [Unknown]
  - Urticaria [Unknown]
  - Vaginal infection [Unknown]
  - Vulvovaginal pruritus [Unknown]
  - Vision blurred [Unknown]
  - Alopecia [Not Recovered/Not Resolved]
  - Back pain [Not Recovered/Not Resolved]
  - Inappropriate schedule of drug administration [Unknown]
